FAERS Safety Report 4382887-4 (Version None)
Quarter: 2004Q2

REPORT INFORMATION
  Report Type: 
  Country: None (occurrence: None)
  Receive Date: 20040617
  Receipt Date: 20040610
  Transmission Date: 20050107
  Serious: Yes (Hospitalization)
  Sender: FDA-Public Use
  Company Number: 2004UW12123

PATIENT
  Age: 12 Month
  Sex: Male

DRUGS (1)
  1. PULMICORT RESPULES [Suspect]
     Dosage: 0.25 MG BID IH
     Route: 055

REACTIONS (1)
  - CATARACT [None]
